FAERS Safety Report 26078632 (Version 1)
Quarter: 2025Q4

REPORT INFORMATION
  Report Type: Spontaneous
  Country: US (occurrence: US)
  Receive Date: 20251123
  Receipt Date: 20251123
  Transmission Date: 20260117
  Serious: No
  Sender: GALPHARM INTERNATIONAL
  Company Number: US-PERRIGO-24US010611

PATIENT
  Age: 30 Year
  Sex: Female
  Weight: 56.689 kg

DRUGS (1)
  1. OPILL [Suspect]
     Active Substance: NORGESTREL
     Indication: Contraception
     Dosage: 0.075 MG, QD
     Route: 048
     Dates: start: 202408, end: 202411

REACTIONS (4)
  - Vulvovaginal dryness [Recovered/Resolved]
  - Acne [Recovering/Resolving]
  - Intermenstrual bleeding [Recovered/Resolved]
  - Dysmenorrhoea [Recovering/Resolving]

NARRATIVE: CASE EVENT DATE: 20240801
